FAERS Safety Report 6041705-9 (Version None)
Quarter: 2009Q1

REPORT INFORMATION
  Report Type: 
  Country: None (occurrence: None)
  Receive Date: 20090116
  Receipt Date: 20090109
  Transmission Date: 20090719
  Serious: Yes (Other)
  Sender: FDA-Public Use
  Company Number: SE-JNJCH-2009000852

PATIENT
  Age: 29 Year
  Sex: Female

DRUGS (2)
  1. MAGNECYL [Suspect]
     Indication: DRUG USE FOR UNKNOWN INDICATION
     Route: 048
     Dates: start: 20050501, end: 20050501
  2. CETIRIZINE HCL [Concomitant]
     Indication: PRURITUS
     Dosage: TEXT:3-4 TABLETS WEEKLY
     Route: 048

REACTIONS (6)
  - CONTUSION [None]
  - HAEMORRHAGE [None]
  - HYPOAESTHESIA [None]
  - MUSCLE SPASMS [None]
  - PAIN IN EXTREMITY [None]
  - SWELLING [None]
